FAERS Safety Report 5787554-8 (Version None)
Quarter: 2008Q2

REPORT INFORMATION
  Report Type: 
  Country: None (occurrence: None)
  Receive Date: 20080625
  Receipt Date: 20071009
  Transmission Date: 20081010
  Serious: No
  Sender: FDA-Public Use
  Company Number: US-ASTRAZENECA-2007UW23450

PATIENT
  Age: 79 Year
  Sex: Female
  Weight: 54.4 kg

DRUGS (14)
  1. PULMICORT [Suspect]
     Indication: EMPHYSEMA
     Dosage: 2 PUFFS
     Route: 055
     Dates: start: 20060101
  2. PULMICORT FLEXHALER [Suspect]
     Indication: EMPHYSEMA
     Route: 055
     Dates: start: 20071009
  3. BENZAPRIL [Concomitant]
  4. AMLODIPINE [Concomitant]
     Route: 048
  5. LEVOXYL [Concomitant]
     Route: 048
  6. PROVENTIL [Concomitant]
  7. ACIPHEX [Concomitant]
     Route: 048
  8. ASPIRIN [Concomitant]
     Route: 048
  9. VITAMIN CAP [Concomitant]
     Route: 048
  10. ASCORBIC ACID [Concomitant]
     Route: 048
  11. VITAMIN E [Concomitant]
     Route: 048
  12. METAMUCIL [Concomitant]
     Route: 048
  13. TYLENOL [Concomitant]
     Route: 048
  14. BENADRYL [Concomitant]
     Route: 048

REACTIONS (2)
  - NASAL CONGESTION [None]
  - SEASONAL ALLERGY [None]
